FAERS Safety Report 23663379 (Version 1)
Quarter: 2024Q1

REPORT INFORMATION
  Report Type: Spontaneous
  Country: US (occurrence: None)
  Receive Date: 20240321
  Receipt Date: 20240321
  Transmission Date: 20240410
  Serious: Yes (Other)
  Sender: FDA-Public Use
  Company Number: None

PATIENT
  Age: 54 Year
  Sex: Female
  Weight: 98.1 kg

DRUGS (12)
  1. MOUNJARO [Suspect]
     Active Substance: TIRZEPATIDE
     Indication: Type 2 diabetes mellitus
     Dosage: OTHER FREQUENCY : WEEKLY;?
     Route: 058
     Dates: start: 20240308, end: 20240312
  2. atorvastatin 40 mg daily [Concomitant]
     Dates: start: 20171012
  3. cyclobenzaprine 10 mg BID PRN [Concomitant]
     Dates: start: 20210312
  4. Jardiance 10 mg daily [Concomitant]
     Dates: start: 20230303, end: 20240312
  5. Lexapro 10 mg daily [Concomitant]
     Dates: start: 20230117
  6. Gabapentin 300 mg BID [Concomitant]
     Dates: start: 20220411
  7. TOUJEO [Concomitant]
     Active Substance: INSULIN GLARGINE
     Dates: start: 20230213
  8. Levothyroxine 25 mcg daily [Concomitant]
     Dates: start: 20170724
  9. lisinopril 10 mg daily [Concomitant]
     Dates: start: 20221116
  10. Meloxicam 7.5 mg twice daily [Concomitant]
     Dates: start: 20230731
  11. Pantoprazole 40 mg daily [Concomitant]
     Dates: start: 20230210
  12. NICOTINE TRANSDERMAL SYSTEM [Concomitant]
     Active Substance: NICOTINE
     Dates: start: 20240226

REACTIONS (5)
  - Diarrhoea [None]
  - Abdominal distension [None]
  - Nausea [None]
  - Hepatic steatosis [None]
  - Therapy cessation [None]

NARRATIVE: CASE EVENT DATE: 20240312
